FAERS Safety Report 13105140 (Version 6)
Quarter: 2018Q4

REPORT INFORMATION
  Report Type: Spontaneous
  Country: CA (occurrence: CA)
  Receive Date: 20170111
  Receipt Date: 20181226
  Transmission Date: 20190204
  Serious: Yes (Life-Threatening, Disabling, Other)
  Sender: FDA-Public Use
  Company Number: CA-PFIZER INC-2017010891

PATIENT
  Age: 50 Year
  Sex: Female
  Weight: 80 kg

DRUGS (9)
  1. ENBREL [Suspect]
     Active Substance: ETANERCEPT
     Dosage: 25 MG, 2X/WEEK (2 TIMES/WK)
     Route: 065
  2. BENADRYL [Concomitant]
     Active Substance: DIPHENHYDRAMINE HYDROCHLORIDE
     Dosage: UNK
  3. PREDNISONE. [Concomitant]
     Active Substance: PREDNISONE
     Dosage: UNK
  4. XELJANZ [Suspect]
     Active Substance: TOFACITINIB CITRATE
     Indication: RHEUMATOID ARTHRITIS
     Dosage: 5 MG, 1 EVERY 2 DAYS
     Route: 065
  5. ENBREL [Suspect]
     Active Substance: ETANERCEPT
     Indication: RHEUMATOID ARTHRITIS
     Dosage: 1 DF, WEEKLY
     Route: 058
  6. ACTEMRA [Suspect]
     Active Substance: TOCILIZUMAB
     Indication: RHEUMATOID ARTHRITIS
     Dosage: UNK
     Route: 065
  7. HUMIRA [Concomitant]
     Active Substance: ADALIMUMAB
     Dosage: UNK
     Route: 058
  8. DYCLONE [Concomitant]
     Active Substance: DYCLONINE HYDROCHLORIDE
     Dosage: UNK
  9. METHOTREXATE SODIUM. [Suspect]
     Active Substance: METHOTREXATE SODIUM
     Indication: RHEUMATOID ARTHRITIS
     Dosage: UNK
     Route: 065

REACTIONS (47)
  - Asthenia [Recovered/Resolved]
  - Chills [Recovered/Resolved]
  - Fatigue [Recovered/Resolved]
  - Nausea [Recovered/Resolved]
  - Nerve injury [Recovered/Resolved]
  - Infection [Not Recovered/Not Resolved]
  - Bone pain [Recovered/Resolved]
  - Muscle disorder [Recovered/Resolved]
  - Pain in extremity [Recovered/Resolved]
  - Productive cough [Recovered/Resolved]
  - Stress [Recovered/Resolved]
  - Loss of consciousness [Not Recovered/Not Resolved]
  - Fall [Recovered/Resolved]
  - Mobility decreased [Recovered/Resolved]
  - Musculoskeletal pain [Recovered/Resolved]
  - Swelling [Recovered/Resolved]
  - Skin discolouration [Not Recovered/Not Resolved]
  - Arthritis [Recovered/Resolved]
  - Mental fatigue [Recovered/Resolved]
  - Brain neoplasm [Not Recovered/Not Resolved]
  - Wrong technique in product usage process [Unknown]
  - Loss of personal independence in daily activities [Recovered/Resolved]
  - Anxiety [Not Recovered/Not Resolved]
  - Cerebral disorder [Recovered/Resolved]
  - Drug hypersensitivity [Recovered/Resolved]
  - Dyspnoea [Recovered/Resolved]
  - Feeling abnormal [Recovered/Resolved]
  - Pyrexia [Recovered/Resolved]
  - Urinary incontinence [Recovered/Resolved]
  - Vomiting [Recovered/Resolved]
  - Burning sensation [Not Recovered/Not Resolved]
  - Head injury [Not Recovered/Not Resolved]
  - Malaise [Recovered/Resolved]
  - Pain [Recovered/Resolved]
  - Peripheral swelling [Recovered/Resolved]
  - Urticaria [Recovered/Resolved]
  - Pruritus [Not Recovered/Not Resolved]
  - Flatulence [Recovered/Resolved]
  - Hyperhidrosis [Recovered/Resolved]
  - Muscular weakness [Recovered/Resolved]
  - Skin atrophy [Recovered/Resolved]
  - Paraesthesia [Recovered/Resolved]
  - Underdose [Unknown]
  - Arthralgia [Recovered/Resolved]
  - Pericarditis [Recovered/Resolved]
  - White blood cell count decreased [Recovered/Resolved]
  - Gastric disorder [Not Recovered/Not Resolved]
